FAERS Safety Report 25164064 (Version 3)
Quarter: 2025Q3

REPORT INFORMATION
  Report Type: Report from Study
  Country: US (occurrence: US)
  Receive Date: 20250405
  Receipt Date: 20250826
  Transmission Date: 20251020
  Serious: Yes (Hospitalization, Other)
  Sender: ABBVIE
  Company Number: US-ABBVIE-6204673

PATIENT
  Age: 71 Year
  Sex: Male

DRUGS (2)
  1. SKYRIZI [Suspect]
     Active Substance: RISANKIZUMAB-RZAA
     Indication: Crohn^s disease
     Route: 058
     Dates: end: 20250605
  2. SKYRIZI [Suspect]
     Active Substance: RISANKIZUMAB-RZAA
     Indication: Crohn^s disease
     Route: 042
     Dates: start: 20241213

REACTIONS (11)
  - Gastrointestinal inflammation [Unknown]
  - Fistula [Unknown]
  - Investigation abnormal [Unknown]
  - Device issue [Not Recovered/Not Resolved]
  - Injection site urticaria [Unknown]
  - Abdominal pain [Unknown]
  - Drug ineffective [Not Recovered/Not Resolved]
  - Intestinal obstruction [Unknown]
  - Constipation [Unknown]
  - Pulmonary thrombosis [Unknown]
  - Spinal fracture [Recovering/Resolving]

NARRATIVE: CASE EVENT DATE: 20250101
